FAERS Safety Report 8074643-0 (Version None)
Quarter: 2012Q1

REPORT INFORMATION
  Report Type: 
  Country: None (occurrence: None)
  Receive Date: 20120126
  Receipt Date: 20120117
  Transmission Date: 20120608
  Serious: Yes (Death, Life-Threatening, Hospitalization, Other)
  Sender: FDA-Public Use
  Company Number: ES-CELGENEUS-144-50794-12011682

PATIENT
  Sex: Male
  Weight: 84 kg

DRUGS (18)
  1. LACTULOSE [Concomitant]
     Indication: CONSTIPATION
     Route: 065
  2. METFORMIN HCL [Concomitant]
     Indication: DIABETES MELLITUS
     Dosage: 850 MILLIGRAM
     Route: 065
  3. FLUOXETINE [Concomitant]
     Dosage: 20-40
     Route: 065
     Dates: start: 20090914, end: 20100703
  4. DEXKETOPROFEN [Concomitant]
     Indication: BACK PAIN
     Route: 065
  5. VIDAZA [Suspect]
     Dosage: 140 MILLIGRAM
     Route: 050
     Dates: start: 20090831, end: 20100607
  6. RAMIPRIL [Concomitant]
     Dosage: 5 MILLIGRAM
     Route: 065
     Dates: start: 20090723, end: 20100528
  7. FUROSEMIDE [Concomitant]
     Route: 065
  8. METOCHLOPRAMIDE [Concomitant]
     Route: 065
     Dates: start: 20090914, end: 20091029
  9. SPIRONOLACTONE [Concomitant]
     Dosage: 25-50 MG / DAY
     Route: 065
     Dates: start: 20090827
  10. ENOXAPARIN [Concomitant]
     Indication: THROMBOSIS PROPHYLAXIS
     Dosage: 40 MILLIGRAM
     Route: 065
     Dates: start: 20090827, end: 20100703
  11. BROMAZEPAM [Concomitant]
     Indication: ANXIETY
     Route: 065
  12. DIFLUCORTOLONE [Concomitant]
     Route: 065
     Dates: start: 20090929, end: 20091012
  13. GLIMEPIRIDE [Concomitant]
     Indication: DIABETES MELLITUS
     Dosage: 4 MILLIGRAM
     Route: 065
  14. DEXKETOPROFEN [Concomitant]
     Route: 065
     Dates: start: 20100703
  15. ACID ACETYLSALICYLIC [Concomitant]
     Indication: THROMBOSIS PROPHYLAXIS
     Dosage: 100 MILLIGRAM
     Route: 065
     Dates: end: 20090827
  16. PIP-TAZOBACTAM [Concomitant]
     Indication: FEBRILE NEUTROPENIA
     Route: 065
     Dates: start: 20091212, end: 20091220
  17. FLUVASTATIN [Concomitant]
     Dosage: 80 MILLIGRAM
     Route: 065
     Dates: end: 20100703
  18. CLOXACILLIN SODIUM [Concomitant]
     Dosage: 2000 MILLIGRAM
     Route: 065
     Dates: start: 20100413, end: 20100417

REACTIONS (5)
  - THROMBOCYTOPENIA [None]
  - STAPHYLOCOCCAL BACTERAEMIA [None]
  - MULTI-ORGAN FAILURE [None]
  - THORACIC VERTEBRAL FRACTURE [None]
  - FUNGAL INFECTION [None]
